FAERS Safety Report 8387057-0 (Version None)
Quarter: 2012Q2

REPORT INFORMATION
  Report Type: 
  Country: None (occurrence: None)
  Receive Date: 20120523
  Receipt Date: 20120523
  Transmission Date: 20120825
  Serious: Yes (Other)
  Sender: FDA-Public Use
  Company Number: None

PATIENT
  Sex: Male
  Weight: 74.3899 kg

DRUGS (1)
  1. TAMSULOSIN HCL [Suspect]
     Indication: BENIGN PROSTATIC HYPERPLASIA
     Dosage: 0.4MG 1 DAILY ORAL
     Route: 048
     Dates: start: 20100507, end: 20100807

REACTIONS (4)
  - NERVOUSNESS [None]
  - DRY MOUTH [None]
  - ABDOMINAL DISCOMFORT [None]
  - SLEEP DISORDER [None]
